FAERS Safety Report 9023715 (Version 2)
Quarter: 2013Q2

REPORT INFORMATION
  Report Type: Spontaneous
  Country: US (occurrence: US)
  Receive Date: 20130121
  Receipt Date: 20130419
  Transmission Date: 20140414
  Serious: Yes (Hospitalization)
  Sender: FDA-Public Use
  Company Number: US-ELI_LILLY_AND_COMPANY-US201301003842

PATIENT
  Sex: Female
  Weight: 65.31 kg

DRUGS (4)
  1. CYMBALTA [Suspect]
     Indication: MAJOR DEPRESSION
     Dosage: 90 MG, EACH MORNING
     Dates: start: 20120312, end: 20120611
  2. CYMBALTA [Suspect]
     Dosage: 60 MG, EACH MORNING
     Route: 048
     Dates: start: 20120321, end: 20121228
  3. CYMBALTA [Suspect]
     Dosage: UNK
     Dates: start: 20130311
  4. LITHIUM [Concomitant]
     Dosage: UNK
     Dates: start: 20121212

REACTIONS (2)
  - Drug-induced liver injury [Recovered/Resolved]
  - Enteritis [Recovered/Resolved]
